FAERS Safety Report 10257919 (Version 1)
Quarter: 2014Q2

REPORT INFORMATION
  Report Type: Spontaneous
  Country: US (occurrence: US)
  Receive Date: 20140625
  Receipt Date: 20140625
  Transmission Date: 20141212
  Serious: No
  Sender: FDA-Public Use
  Company Number: US-PFIZER INC-2014169446

PATIENT
  Age: 32 Year
  Sex: Female
  Weight: 80.27 kg

DRUGS (2)
  1. LYRICA [Suspect]
     Indication: FIBROMYALGIA
     Dosage: 100 MG, 2X/DAY
     Dates: start: 201306
  2. PROZAC [Concomitant]
     Dosage: 20 MG, UNK

REACTIONS (2)
  - Malaise [Unknown]
  - Drug effect decreased [Unknown]
